FAERS Safety Report 7517165-5 (Version None)
Quarter: 2011Q2

REPORT INFORMATION
  Report Type: 
  Country: None (occurrence: None)
  Receive Date: 20110601
  Receipt Date: 20110525
  Transmission Date: 20111010
  Serious: Yes (Life-Threatening, Hospitalization, Disabling, Other)
  Sender: FDA-Public Use
  Company Number: US-PFIZER INC-2011114510

PATIENT
  Sex: Female

DRUGS (6)
  1. KLONOPIN [Suspect]
     Dosage: UNK
  2. GEODON [Concomitant]
     Indication: HOMICIDAL IDEATION
     Dosage: UNK
  3. NEURONTIN [Suspect]
     Indication: FIBROMYALGIA
  4. TRAZODONE HYDROCHLORIDE [Suspect]
     Indication: INSOMNIA
     Dosage: 200 MG, DAILY AT NIGHT
     Route: 048
  5. XANAX [Suspect]
     Dosage: UNK
  6. NEURONTIN [Suspect]
     Indication: MUSCLE DISORDER
     Dosage: UNK
     Route: 048
     Dates: start: 20080101, end: 20110525

REACTIONS (34)
  - SWELLING [None]
  - DEMENTIA [None]
  - COORDINATION ABNORMAL [None]
  - FALL [None]
  - BALANCE DISORDER [None]
  - SUICIDE ATTEMPT [None]
  - DIPLOPIA [None]
  - POLLAKIURIA [None]
  - ASTHENIA [None]
  - HYPERHIDROSIS [None]
  - DEPRESSION [None]
  - DEHYDRATION [None]
  - MOOD SWINGS [None]
  - THINKING ABNORMAL [None]
  - HEADACHE [None]
  - URINARY TRACT INFECTION VIRAL [None]
  - PAIN [None]
  - DELUSION [None]
  - FEAR [None]
  - CONSTIPATION [None]
  - ABNORMAL DREAMS [None]
  - CHILLS [None]
  - PARANOIA [None]
  - HEART RATE INCREASED [None]
  - AGGRESSION [None]
  - AGITATION [None]
  - GAIT DISTURBANCE [None]
  - ABDOMINAL DISTENSION [None]
  - RESTLESS LEGS SYNDROME [None]
  - MANIA [None]
  - HYPERTENSION [None]
  - VIRAL INFECTION [None]
  - ABDOMINAL PAIN [None]
  - DECREASED APPETITE [None]
